FAERS Safety Report 5454632-2 (Version None)
Quarter: 2007Q3

REPORT INFORMATION
  Report Type: 
  Country: None (occurrence: None)
  Receive Date: 20070917
  Receipt Date: 20060725
  Transmission Date: 20080115
  Serious: Yes (Hospitalization)
  Sender: FDA-Public Use
  Company Number: US-ASTRAZENECA-2006UW15013

PATIENT
  Age: 41 Year
  Sex: Male
  Weight: 72.6 kg

DRUGS (8)
  1. SEROQUEL [Suspect]
     Indication: DYSTONIA
     Route: 048
     Dates: start: 20060301, end: 20060501
  2. SEROQUEL [Suspect]
     Indication: DEPRESSION
     Route: 048
     Dates: start: 20060301, end: 20060501
  3. SEROQUEL [Suspect]
     Indication: BIPOLAR DISORDER
     Route: 048
     Dates: start: 20060301, end: 20060501
  4. SEROQUEL [Suspect]
     Route: 048
     Dates: start: 20060701
  5. SEROQUEL [Suspect]
     Route: 048
     Dates: start: 20060701
  6. SEROQUEL [Suspect]
     Route: 048
     Dates: start: 20060701
  7. VISTARIL [Concomitant]
  8. CLONIDINE [Concomitant]

REACTIONS (1)
  - SUICIDAL IDEATION [None]
